FAERS Safety Report 14502808 (Version 6)
Quarter: 2018Q1

REPORT INFORMATION
  Report Type: Report from Study
  Country: US (occurrence: US)
  Receive Date: 20180208
  Receipt Date: 20180322
  Transmission Date: 20180509
  Serious: Yes (Death, Hospitalization, Other)
  Sender: FDA-Public Use
  Company Number: US-GILEAD-2018-0319490

PATIENT
  Age: 7 Year
  Sex: Female
  Weight: 33.9 kg

DRUGS (5)
  1. REMODULIN [Concomitant]
     Active Substance: TREPROSTINIL
     Indication: PULMONARY HYPERTENSION
     Dosage: 60 NG, UNK
     Route: 058
     Dates: start: 201605, end: 20180228
  2. COUMADIN [Concomitant]
     Active Substance: WARFARIN SODIUM
  3. ASPIRIN                            /00002701/ [Concomitant]
     Active Substance: ASPIRIN
     Indication: PULMONARY HYPERTENSION
     Dosage: 81 MG, UNK
     Route: 048
     Dates: start: 201405
  4. ASPIRIN                            /00002701/ [Concomitant]
     Active Substance: ASPIRIN
     Dosage: 40.5 UNK, UNK
     Route: 048
     Dates: start: 201505, end: 20180228
  5. AMBRISENTAN [Suspect]
     Active Substance: AMBRISENTAN
     Indication: PULMONARY HYPERTENSION
     Dosage: 5 MG, QD
     Route: 048
     Dates: start: 201405, end: 20180228

REACTIONS (8)
  - Platelet count decreased [Unknown]
  - Cough [Recovered/Resolved]
  - Lung disorder [Unknown]
  - Laboratory test abnormal [Recovered/Resolved]
  - Pyrexia [Recovered/Resolved]
  - Death [Fatal]
  - Pulmonary arterial hypertension [Recovered/Resolved]
  - Off label use [Not Recovered/Not Resolved]

NARRATIVE: CASE EVENT DATE: 201405
